FAERS Safety Report 18454829 (Version 2)
Quarter: 2020Q4

REPORT INFORMATION
  Report Type: Report from Study
  Country: BD (occurrence: BD)
  Receive Date: 20201102
  Receipt Date: 20201109
  Transmission Date: 20210114
  Serious: Yes (Death, Hospitalization)
  Sender: FDA-Public Use
  Company Number: NVSC2020BD294162

PATIENT
  Age: 85 Year
  Sex: Female

DRUGS (1)
  1. ACLASTA [Suspect]
     Active Substance: ZOLEDRONIC ACID
     Indication: OSTEOPOROSIS
     Dosage: 1 DF, ONCE/SINGLE (5\100 1S)
     Route: 042
     Dates: start: 20201005

REACTIONS (3)
  - Cough [Unknown]
  - Heart rate decreased [Unknown]
  - Bradycardia [Fatal]

NARRATIVE: CASE EVENT DATE: 20201019
